FAERS Safety Report 10399999 (Version 3)
Quarter: 2014Q4

REPORT INFORMATION
  Report Type: Spontaneous
  Country: US (occurrence: US)
  Receive Date: 20140821
  Receipt Date: 20141105
  Transmission Date: 20150528
  Serious: No
  Sender: FDA-Public Use
  Company Number: US-TEVA-502741USA

PATIENT
  Age: 51 Year
  Sex: Male

DRUGS (2)
  1. SPIRIVA [Concomitant]
     Active Substance: TIOTROPIUM BROMIDE MONOHYDRATE
     Indication: CHRONIC OBSTRUCTIVE PULMONARY DISEASE
  2. PROAIR HFA [Suspect]
     Active Substance: ALBUTEROL SULFATE
     Indication: CHRONIC OBSTRUCTIVE PULMONARY DISEASE
     Route: 055

REACTIONS (5)
  - Drug effect decreased [Unknown]
  - Wheezing [Recovered/Resolved]
  - Expired product administered [Unknown]
  - Product taste abnormal [Unknown]
  - Product contamination microbial [Unknown]

NARRATIVE: CASE EVENT DATE: 20140721
